FAERS Safety Report 8172162-4 (Version None)
Quarter: 2012Q1

REPORT INFORMATION
  Report Type: 
  Country: None (occurrence: None)
  Receive Date: 20120228
  Receipt Date: 20120223
  Transmission Date: 20120608
  Serious: Yes (Other)
  Sender: FDA-Public Use
  Company Number: GB-MERCK-1202GBR00118

PATIENT
  Sex: Male

DRUGS (2)
  1. ZETIA [Suspect]
     Route: 048
  2. ZOCOR [Concomitant]
     Route: 048

REACTIONS (2)
  - MUSCLE ATROPHY [None]
  - SPINAL DISORDER [None]
